FAERS Safety Report 21598405 (Version 1)
Quarter: 2022Q4

REPORT INFORMATION
  Report Type: Spontaneous
  Country: FR (occurrence: FR)
  Receive Date: 20221115
  Receipt Date: 20221115
  Transmission Date: 20230112
  Serious: Yes (Hospitalization)
  Sender: FDA-Public Use
  Company Number: None

PATIENT
  Age: 87 Year
  Sex: Male
  Weight: 60.9 kg

DRUGS (11)
  1. LINEZOLID [Suspect]
     Active Substance: LINEZOLID
     Indication: Pneumonia
     Dosage: 1 TABLET OF 600 MG AT 08 AM AND 1 AT 8 PM?UNIT DOSE - 600 MG
     Route: 065
     Dates: start: 20220105, end: 20220119
  2. VITAMINS [Suspect]
     Active Substance: VITAMINS
     Indication: Product used for unknown indication
     Dosage: 50 DROPS AT 10 AM
     Route: 065
     Dates: start: 20211214, end: 20220113
  3. VIDAZA [Suspect]
     Active Substance: AZACITIDINE
     Indication: Acute myeloid leukaemia
     Route: 065
     Dates: start: 202201
  4. PIPERACILLIN SODIUM\TAZOBACTAM SODIUM [Suspect]
     Active Substance: PIPERACILLIN SODIUM\TAZOBACTAM SODIUM
     Indication: Pneumonia
     Route: 065
     Dates: start: 20220103, end: 20220117
  5. VALACYCLOVIR HYDROCHLORIDE [Suspect]
     Active Substance: VALACYCLOVIR HYDROCHLORIDE
     Indication: Product used for unknown indication
     Dosage: 1 TABLET OF 500 MG AT 8 AM AND 1 TABLET AT 08 PM?UNIT DOSE - 500 MILLIGRAM
     Route: 065
     Dates: start: 20220103, end: 20220113
  6. OXAZEPAM [Concomitant]
     Active Substance: OXAZEPAM
     Indication: Product used for unknown indication
     Dosage: 1 TABLET OF 10 MG AT BEDTIME
     Route: 065
  7. FUNGIZONE 10 POUR CENT, drinkable suspension [Concomitant]
     Indication: Product used for unknown indication
     Dosage: 3 TIMES PER DAY
     Route: 065
  8. PRIMPERAN 10 mg, scored tablet [Concomitant]
     Indication: Product used for unknown indication
     Route: 065
  9. FUROSEMIDE [Concomitant]
     Active Substance: FUROSEMIDE
     Indication: Product used for unknown indication
     Dosage: 1 TABLET OF 40MG IN THE MORNING AND 1/2TABLET AT LUNCH (TO BE RE-EVALUATED ACCORDING TO THE STATE OF
     Route: 065
  10. KALEORID LP 1000 mg, extended-release tablet [Concomitant]
     Indication: Product used for unknown indication
     Dosage: 2 TABLETS IN THE MORNING, 2 AT NOON AND 2 IN THE EVENING (TO BE RE-EVALUATED ACCORDING TO THE IONOGR
     Route: 065
  11. CALCIDIA 1,54 g, granulated for drinkable suspension in sachet [Concomitant]
     Indication: Product used for unknown indication
     Dosage: 1 BAG AT 10AM AND 1 BAG AT 3PM
     Route: 065

REACTIONS (3)
  - Hepatitis acute [Recovering/Resolving]
  - Hepatic failure [Recovering/Resolving]
  - Diarrhoea [Recovering/Resolving]

NARRATIVE: CASE EVENT DATE: 20220113
